FAERS Safety Report 14651176 (Version 4)
Quarter: 2018Q2

REPORT INFORMATION
  Report Type: Report from Study
  Country: FR (occurrence: FR)
  Receive Date: 20180316
  Receipt Date: 20180612
  Transmission Date: 20180711
  Serious: Yes (Death, Hospitalization, Other)
  Sender: FDA-Public Use
  Company Number: FR-GILEAD-2018-0317568AA

PATIENT
  Age: 73 Year
  Sex: Male

DRUGS (5)
  1. IDELALISIB [Suspect]
     Active Substance: IDELALISIB
     Dosage: UNK
     Route: 048
     Dates: start: 20171002
  2. IDELALISIB [Suspect]
     Active Substance: IDELALISIB
     Dosage: 300 MG, QD
     Route: 048
     Dates: end: 20171219
  3. GAZYVARO [Suspect]
     Active Substance: OBINUTUZUMAB
     Indication: WALDENSTROM^S MACROGLOBULINAEMIA
     Dosage: 1000 MG, CYCLICAL
     Route: 041
     Dates: start: 20170321, end: 20170808
  4. IDELALISIB [Suspect]
     Active Substance: IDELALISIB
     Indication: WALDENSTROM^S MACROGLOBULINAEMIA
     Dosage: 300 MG, QD
     Route: 048
     Dates: start: 20170321, end: 20170516
  5. VALGANCICLOVIR. [Concomitant]
     Active Substance: VALGANCICLOVIR
     Route: 065

REACTIONS (3)
  - Acute coronary syndrome [Not Recovered/Not Resolved]
  - Pneumonia [Not Recovered/Not Resolved]
  - Septic shock [Fatal]

NARRATIVE: CASE EVENT DATE: 20171219
